FAERS Safety Report 21017054 (Version 2)
Quarter: 2022Q4

REPORT INFORMATION
  Report Type: Spontaneous
  Country: CH (occurrence: CH)
  Receive Date: 20220628
  Receipt Date: 20221027
  Transmission Date: 20230112
  Serious: Yes (Life-Threatening, Hospitalization, Other)
  Sender: FDA-Public Use
  Company Number: CH-PFIZER INC-PV202200006268

PATIENT
  Age: 35 Year
  Sex: Male

DRUGS (10)
  1. METHYLPREDNISOLONE SODIUM SUCCINATE [Suspect]
     Active Substance: METHYLPREDNISOLONE SODIUM SUCCINATE
     Dosage: 250 MG
     Route: 042
  2. EPINEPHRINE [Suspect]
     Active Substance: EPINEPHRINE
     Indication: Anaphylactic reaction
     Dosage: 0.3 MG (TWO DOSES)
     Route: 030
  3. EPINEPHRINE [Suspect]
     Active Substance: EPINEPHRINE
     Indication: Arthropod sting
     Dosage: 10 MG
     Route: 042
  4. CLEMASTINE [Suspect]
     Active Substance: CLEMASTINE
     Indication: Anaphylactic reaction
     Dosage: 2 MG
     Route: 042
  5. CLEMASTINE [Suspect]
     Active Substance: CLEMASTINE
     Indication: Arthropod sting
  6. AMIODARONE [Concomitant]
     Active Substance: AMIODARONE
     Dosage: UNK
     Route: 042
  7. FENTANYL [Concomitant]
     Active Substance: FENTANYL
     Dosage: UNK
     Route: 042
  8. ROCURONIUM [Concomitant]
     Active Substance: ROCURONIUM BROMIDE
     Dosage: UNK
     Route: 042
  9. PROPOFOL [Concomitant]
     Active Substance: PROPOFOL
     Dosage: UNK
     Route: 042
  10. MIDAZOLAM [Concomitant]
     Active Substance: MIDAZOLAM
     Dosage: UNK
     Route: 042

REACTIONS (5)
  - Anaphylactic reaction [Recovered/Resolved]
  - Cardiac arrest [Unknown]
  - Tachycardia [Unknown]
  - Drug ineffective [Unknown]
  - Dyspnoea [Unknown]
